FAERS Safety Report 10935453 (Version 1)
Quarter: 2015Q1

REPORT INFORMATION
  Report Type: Spontaneous
  Country: US (occurrence: US)
  Receive Date: 20150320
  Receipt Date: 20150320
  Transmission Date: 20150721
  Serious: Yes (Hospitalization, Other)
  Sender: FDA-Public Use
  Company Number: US-GLAXOSMITHKLINE-US2015035496

PATIENT
  Sex: Female

DRUGS (5)
  1. CELLCEPT (MYCOPHENOLATE) [Concomitant]
  2. BENLYSTA [Suspect]
     Active Substance: BELIMUMAB
     Indication: SYSTEMIC LUPUS ERYTHEMATOSUS
     Dosage: UNK, CYC
     Route: 042
     Dates: start: 201307
  3. PREDNISONE. [Suspect]
     Active Substance: PREDNISONE
     Indication: PRODUCT USED FOR UNKNOWN INDICATION
     Dosage: UNK UNK, U
     Dates: end: 201305
  4. PREDNISONE. [Suspect]
     Active Substance: PREDNISONE
     Dosage: 20 MG, U
  5. HYDROCHLOROQUINE (MEDICATION UNKNOWN) [Concomitant]

REACTIONS (6)
  - Depression [Recovered/Resolved]
  - Chest pain [Recovered/Resolved]
  - Steroid withdrawal syndrome [Unknown]
  - Fatigue [Recovered/Resolved]
  - Myalgia [Recovered/Resolved]
  - Systemic lupus erythematosus [Unknown]
